FAERS Safety Report 8471882-1 (Version None)
Quarter: 2012Q2

REPORT INFORMATION
  Report Type: 
  Country: None (occurrence: None)
  Receive Date: 20120627
  Receipt Date: 20120619
  Transmission Date: 20120825
  Serious: Yes (Other)
  Sender: FDA-Public Use
  Company Number: US-JNJFOC-20120517348

PATIENT

DRUGS (8)
  1. CYCLOPHOSPHAMIDE [Suspect]
     Indication: BREAST CANCER
     Dosage: EVERY 14 DAYS FOR 4 CYCLES IN ARM A
     Route: 065
  2. RADIATION THERAPY NOS [Concomitant]
     Indication: BREAST CANCER
     Route: 065
  3. BEVACIZUMAB [Suspect]
     Indication: BREAST CANCER
     Dosage: EVERY 14 DAYS FOR 18 CYCLES (CYCLE 9-26 IN ARM A
     Route: 042
  4. PACLITAXEL [Suspect]
     Indication: BREAST CANCER
     Dosage: EVERY 14 DAYS FOR 4 CYCLES IN ARM A CYCLE 5-8
     Route: 065
  5. DOXORUBICIN HCL [Suspect]
     Indication: BREAST CANCER
     Dosage: EVERY 14 DAYS FOR 4 CYCLES IN ARM A
     Route: 042
  6. DOXORUBICIN HCL [Suspect]
     Dosage: EVERY 14 DAYS FOR 4 CYCLES IN ARM A
     Route: 065
  7. BEVACIZUMAB [Suspect]
     Dosage: 14 DAYS, 4 CYCLES (1-4, 5-8), 14 DAYS, 18 CYCLES IN ARM A (9-26) AND 22 CYCLES ARM B (9-30)
     Route: 042
  8. HORMONAL TREATMENT NOS [Concomitant]
     Indication: BREAST CANCER
     Route: 065

REACTIONS (1)
  - EMBOLISM [None]
